FAERS Safety Report 7062824-4 (Version None)
Quarter: 2010Q4

REPORT INFORMATION
  Report Type: 
  Country: None (occurrence: None)
  Receive Date: 20101026
  Receipt Date: 20100125
  Transmission Date: 20110411
  Serious: No
  Sender: FDA-Public Use
  Company Number: US-PFIZER INC-2009310331

PATIENT
  Sex: Female
  Weight: 65.8 kg

DRUGS (6)
  1. LIPITOR [Suspect]
     Indication: BLOOD TRIGLYCERIDES INCREASED
     Dosage: UNK
     Route: 048
  2. VALSARTAN [Concomitant]
     Dosage: 320 MG, 1X/DAY
     Route: 048
  3. WARFARIN SODIUM [Concomitant]
     Dosage: 2.5 MG, UNK
     Route: 048
  4. PREVACID [Concomitant]
     Dosage: 30 MG, 1X/DAY
     Route: 048
  5. AMLODIPINE [Concomitant]
     Dosage: 5 MG, 1X/DAY
     Route: 048
  6. XANAX [Concomitant]
     Dosage: 0.25 MG, 1X/DAY
     Route: 048

REACTIONS (1)
  - DYSPHAGIA [None]
